FAERS Safety Report 13540245 (Version 2)
Quarter: 2017Q2

REPORT INFORMATION
  Report Type: Spontaneous
  Country: US (occurrence: US)
  Receive Date: 20170512
  Receipt Date: 20170623
  Transmission Date: 20170830
  Serious: No
  Sender: FDA-Public Use
  Company Number: US-009507513-1704USA015051

PATIENT
  Age: 20 Year
  Sex: Female
  Weight: 105.22 kg

DRUGS (2)
  1. NEXPLANON [Suspect]
     Active Substance: ETONOGESTREL
     Indication: CONTRACEPTION
     Dosage: ONE ROD PER 3 YEARS
     Route: 059
     Dates: start: 20170123, end: 20170427
  2. NEXPLANON [Suspect]
     Active Substance: ETONOGESTREL
     Dosage: ONE ROD PER 3 YEARS
     Route: 059
     Dates: start: 20170427

REACTIONS (5)
  - Implant site vesicles [Unknown]
  - Device deployment issue [Recovered/Resolved]
  - Device expulsion [Recovered/Resolved]
  - Blister infected [Unknown]
  - Blister rupture [Unknown]

NARRATIVE: CASE EVENT DATE: 2017
